FAERS Safety Report 11120563 (Version 1)
Quarter: 2015Q2

REPORT INFORMATION
  Report Type: Report from Study
  Country: US (occurrence: US)
  Receive Date: 20150519
  Receipt Date: 20150519
  Transmission Date: 20150821
  Serious: Yes (Other)
  Sender: FDA-Public Use
  Company Number: US-AMGEN-USASP2013056048

PATIENT
  Age: 38 Year
  Sex: Female

DRUGS (4)
  1. ENBREL [Suspect]
     Active Substance: ETANERCEPT
     Indication: RHEUMATOID ARTHRITIS
     Dosage: 50 MG, EVERY TWO TO THREE WEEKS
     Route: 065
     Dates: start: 20010101
  2. HUMIRA [Suspect]
     Active Substance: ADALIMUMAB
     Indication: PRODUCT USED FOR UNKNOWN INDICATION
     Dosage: UNK
     Route: 065
  3. PREDNISONE. [Suspect]
     Active Substance: PREDNISONE
     Indication: PRODUCT USED FOR UNKNOWN INDICATION
     Dosage: UNK
     Route: 065
  4. METHOTREXATE [Concomitant]
     Active Substance: METHOTREXATE
     Dosage: UNK, 8 TABLETS ONCE WEEKLY
     Dates: start: 201302

REACTIONS (20)
  - Sinusitis [Recovered/Resolved]
  - Injection site pain [Recovered/Resolved]
  - Musculoskeletal pain [Recovered/Resolved]
  - Swelling face [Recovered/Resolved]
  - Weight increased [Recovered/Resolved]
  - Rheumatoid arthritis [Recovered/Resolved]
  - Malaise [Recovered/Resolved]
  - Burning sensation [Recovered/Resolved]
  - Skin hypertrophy [Recovered/Resolved]
  - Contusion [Recovered/Resolved]
  - Dizziness [Not Recovered/Not Resolved]
  - Tonsillectomy [Recovered/Resolved]
  - Kyphosis [Recovered/Resolved]
  - Caesarean section [Unknown]
  - Acne [Recovered/Resolved]
  - Psoriasis [Recovered/Resolved]
  - Pain in extremity [Recovered/Resolved]
  - Pain [Recovered/Resolved]
  - Peripheral swelling [Recovered/Resolved]
  - Pregnancy [Recovered/Resolved]

NARRATIVE: CASE EVENT DATE: 2005
